FAERS Safety Report 5412105-7 (Version None)
Quarter: 2007Q3

REPORT INFORMATION
  Report Type: 
  Country: None (occurrence: None)
  Receive Date: 20070813
  Receipt Date: 20070807
  Transmission Date: 20080115
  Serious: Yes (Other)
  Sender: FDA-Public Use
  Company Number: DK-AVENTIS-200717212GDDC

PATIENT
  Age: 8 Year
  Sex: Female

DRUGS (1)
  1. MINIRIN [Suspect]
     Route: 055

REACTIONS (2)
  - HYPONATRAEMIA [None]
  - HYPONATRAEMIC ENCEPHALOPATHY [None]
